FAERS Safety Report 12632316 (Version 2)
Quarter: 2016Q3

REPORT INFORMATION
  Report Type: Spontaneous
  Country: US (occurrence: US)
  Receive Date: 20160808
  Receipt Date: 20160808
  Transmission Date: 20161109
  Serious: No
  Sender: FDA-Public Use
  Company Number: US-BEH-2016062384

PATIENT
  Sex: Female
  Weight: 103 kg

DRUGS (21)
  1. HIZENTRA [Suspect]
     Active Substance: HUMAN IMMUNOGLOBULIN G
     Indication: HYPOGAMMAGLOBULINAEMIA
     Route: 058
  2. ACETAMINOPHEN. [Concomitant]
     Active Substance: ACETAMINOPHEN
  3. DIPHENHYDRAMINE. [Concomitant]
     Active Substance: DIPHENHYDRAMINE
  4. LYRICA [Concomitant]
     Active Substance: PREGABALIN
  5. TRICOR [Concomitant]
     Active Substance: FENOFIBRATE
  6. RESTASIS [Concomitant]
     Active Substance: CYCLOSPORINE
  7. VALIUM [Concomitant]
     Active Substance: DIAZEPAM
  8. HIZENTRA [Suspect]
     Active Substance: HUMAN IMMUNOGLOBULIN G
     Route: 058
     Dates: start: 20120520
  9. PROVENTIL [Concomitant]
     Active Substance: ALBUTEROL
  10. CALTRATE [Concomitant]
     Active Substance: CALCIUM CARBONATE
  11. IBUPROFEN. [Concomitant]
     Active Substance: IBUPROFEN
  12. EPIPEN [Concomitant]
     Active Substance: EPINEPHRINE
  13. FLEXERIL [Concomitant]
     Active Substance: CYCLOBENZAPRINE HYDROCHLORIDE
  14. NEXIUM [Concomitant]
     Active Substance: ESOMEPRAZOLE MAGNESIUM
  15. HIZENTRA [Suspect]
     Active Substance: HUMAN IMMUNOGLOBULIN G
     Route: 058
  16. LIDOCAINE/PRILOCAINE [Concomitant]
     Active Substance: LIDOCAINE\PRILOCAINE
  17. MAXALT [Concomitant]
     Active Substance: RIZATRIPTAN BENZOATE
  18. FOLIC ACID. [Concomitant]
     Active Substance: FOLIC ACID
  19. METHOREXATE [Concomitant]
     Active Substance: METHOTREXATE SODIUM
  20. TRAZODONE [Concomitant]
     Active Substance: TRAZODONE HYDROCHLORIDE
  21. EVOXAC [Concomitant]
     Active Substance: CEVIMELINE HYDROCHLORIDE

REACTIONS (3)
  - Administration site pruritus [Unknown]
  - Administration site pain [Unknown]
  - Administration site erythema [Unknown]
